FAERS Safety Report 24394685 (Version 3)
Quarter: 2024Q4

REPORT INFORMATION
  Report Type: Spontaneous
  Country: CA (occurrence: CA)
  Receive Date: 20241004
  Receipt Date: 20241129
  Transmission Date: 20250115
  Serious: Yes (Other)
  Sender: ALEXION PHARMACEUTICALS
  Company Number: CA-AstraZeneca-CH-00713710AM

PATIENT
  Age: 81 Year

DRUGS (4)
  1. CALQUENCE [Suspect]
     Active Substance: ACALABRUTINIB
     Indication: Chronic lymphocytic leukaemia
     Dosage: UNK
  2. CALQUENCE [Suspect]
     Active Substance: ACALABRUTINIB
     Dosage: UNK
  3. CALQUENCE [Suspect]
     Active Substance: ACALABRUTINIB
     Dosage: UNK
  4. CALQUENCE [Suspect]
     Active Substance: ACALABRUTINIB
     Dosage: UNK

REACTIONS (8)
  - Internal haemorrhage [Unknown]
  - Oral mucosa haematoma [Not Recovered/Not Resolved]
  - Eye haematoma [Not Recovered/Not Resolved]
  - Gastrointestinal disorder [Not Recovered/Not Resolved]
  - Fatigue [Not Recovered/Not Resolved]
  - Underweight [Unknown]
  - Abdominal pain upper [Not Recovered/Not Resolved]
  - Constipation [Not Recovered/Not Resolved]
